FAERS Safety Report 14204936 (Version 1)
Quarter: 2017Q4

REPORT INFORMATION
  Report Type: Spontaneous
  Country: US (occurrence: US)
  Receive Date: 20171119
  Receipt Date: 20171119
  Transmission Date: 20180321
  Serious: No
  Sender: FDA-Public Use
  Company Number: None

PATIENT
  Age: 36 Year
  Sex: Male
  Weight: 102.15 kg

DRUGS (3)
  1. ASPIRIN. [Concomitant]
     Active Substance: ASPIRIN
  2. ALEVE [Concomitant]
     Active Substance: NAPROXEN SODIUM
  3. CEFDINIR 300MG [Suspect]
     Active Substance: CEFDINIR
     Indication: PYREXIA
     Dosage: ?          QUANTITY:1 CAPSULE(S);?
     Route: 048
     Dates: start: 20171117, end: 20171118

REACTIONS (4)
  - Sleep disorder [None]
  - Abnormal dreams [None]
  - Heart rate increased [None]
  - Nasal mucosal disorder [None]

NARRATIVE: CASE EVENT DATE: 20171118
